FAERS Safety Report 5012823-9 (Version None)
Quarter: 2006Q2

REPORT INFORMATION
  Report Type: 
  Country: None (occurrence: None)
  Receive Date: 20060530
  Receipt Date: 20060404
  Transmission Date: 20061013
  Serious: Yes (Death, Hospitalization)
  Sender: FDA-Public Use
  Company Number: US-BRISTOL-MYERS SQUIBB COMPANY-13335518

PATIENT
  Age: 3 Decade
  Sex: Female

DRUGS (5)
  1. ERBITUX [Suspect]
     Indication: COLORECTAL CANCER METASTATIC
     Route: 042
  2. CPT-11 [Concomitant]
  3. BENADRYL [Concomitant]
  4. FENTANYL [Concomitant]
  5. MORPHINE [Concomitant]

REACTIONS (1)
  - COLORECTAL CANCER METASTATIC [None]
